FAERS Safety Report 10225680 (Version 1)
Quarter: 2014Q2

REPORT INFORMATION
  Report Type: Spontaneous
  Country: US (occurrence: US)
  Receive Date: 20140609
  Receipt Date: 20140609
  Transmission Date: 20141212
  Serious: Yes (Hospitalization)
  Sender: FDA-Public Use
  Company Number: US-ASTELLAS-2013US008278

PATIENT
  Age: 41 Year
  Sex: Female
  Weight: 58 kg

DRUGS (3)
  1. PROGRAF [Suspect]
     Indication: LIVER TRANSPLANT
     Route: 048
     Dates: start: 20091205
  2. MYCOPHENOLATE [Concomitant]
     Indication: LIVER TRANSPLANT
     Route: 048
  3. CELLCEPT                           /01275102/ [Concomitant]
     Indication: LIVER TRANSPLANT
     Route: 048
     Dates: start: 20091205

REACTIONS (1)
  - Liver function test abnormal [Unknown]
